FAERS Safety Report 9435748 (Version 2)
Quarter: 2013Q3

REPORT INFORMATION
  Report Type: Spontaneous
  Country: US (occurrence: US)
  Receive Date: 20130801
  Receipt Date: 20130816
  Transmission Date: 20140515
  Serious: Yes (Other)
  Sender: FDA-Public Use
  Company Number: US-ASTRAZENECA-2013SE56396

PATIENT
  Age: 74 Year
  Sex: Female
  Weight: 72.6 kg

DRUGS (2)
  1. SYMBICORT [Suspect]
     Indication: CHRONIC OBSTRUCTIVE PULMONARY DISEASE
     Dosage: 160-4.5 TWO INHALATION TWICE DAILY
     Route: 055
     Dates: start: 20121101
  2. SYMBICORT [Suspect]
     Indication: CHRONIC OBSTRUCTIVE PULMONARY DISEASE
     Dosage: 160-4.5 ONE INHALATION TWICE DAILY
     Route: 055
     Dates: start: 2013

REACTIONS (4)
  - Osteoarthritis [Unknown]
  - Lung disorder [Unknown]
  - Drug dispensing error [Unknown]
  - Off label use [Unknown]
